FAERS Safety Report 8061581-2 (Version None)
Quarter: 2012Q1

REPORT INFORMATION
  Report Type: 
  Country: None (occurrence: None)
  Receive Date: 20120122
  Receipt Date: 20111222
  Transmission Date: 20120608
  Serious: Yes (Hospitalization)
  Sender: FDA-Public Use
  Company Number: PHHO2011JP020774

PATIENT
  Sex: Male

DRUGS (12)
  1. BLINDED AIN457 [Suspect]
     Dosage: DOUBLE BLINDED
     Route: 058
     Dates: start: 20111130
  2. BETAXOLOL HYDROCHLORIDE [Concomitant]
     Indication: HYPERTENSION
     Dosage: UNK
     Route: 048
     Dates: start: 20080101, end: 20111209
  3. BLINDED PLACEBO [Suspect]
     Dosage: DOUBLE BLINDED
     Route: 058
     Dates: start: 20111130
  4. BLINDED PLACEBO [Suspect]
     Indication: PSORIASIS
     Dosage: DOUBLE BLINDED
     Route: 058
     Dates: start: 20111124
  5. EXFORGE [Concomitant]
     Indication: HYPERTENSION
     Dosage: 1 DF, UNK
     Route: 048
     Dates: start: 20080101
  6. BLINDED AIN457 [Suspect]
     Indication: PSORIASIS
     Dosage: DOUBLE BLINDED
     Route: 058
     Dates: start: 20111124
  7. BLINDED NO TREATMENT RECEIVED [Suspect]
     Dosage: DOUBLE BLINDED
     Route: 058
     Dates: start: 20111130
  8. NEORAL [Suspect]
     Indication: PSORIASIS
     Dosage: 150 MG, UNK
     Route: 048
     Dates: start: 20111205, end: 20111207
  9. CARVEDILOL [Concomitant]
     Indication: HYPERTENSION
     Dosage: UNK
     Route: 048
     Dates: start: 20080101
  10. BLINDED NO TREATMENT RECEIVED [Suspect]
     Indication: PSORIASIS
     Dosage: DOUBLE BLINDED
     Route: 058
     Dates: start: 20111124
  11. GLYCYRON [Concomitant]
     Dosage: 4 DF, UNK
     Route: 048
     Dates: start: 20080101
  12. DOXAZOSIN MESYLATE [Concomitant]
     Indication: HYPERTENSION
     Dosage: UNK
     Route: 048
     Dates: start: 20080101

REACTIONS (3)
  - CARDIAC FAILURE [None]
  - PULMONARY OEDEMA [None]
  - DISEASE PROGRESSION [None]
